FAERS Safety Report 5902820-0 (Version None)
Quarter: 2008Q3

REPORT INFORMATION
  Report Type: 
  Country: None (occurrence: None)
  Receive Date: 20080926
  Receipt Date: 20080918
  Transmission Date: 20090109
  Serious: Yes (Other)
  Sender: FDA-Public Use
  Company Number: 2006JP00483

PATIENT
  Age: 46 Year
  Sex: Female
  Weight: 69 kg

DRUGS (5)
  1. PROGRAF [Suspect]
     Indication: LIVER TRANSPLANT
  2. STEROID [Concomitant]
  3. SULFAMETHOXAZOLE AND TRIMETHOPRIM (SULFAMETHOXAZOLE, TRIMETHOPRIM) [Concomitant]
  4. ZOVIRAX [Concomitant]
  5. H2-RECEPTOR ANTAGONISTS [Concomitant]

REACTIONS (10)
  - AKINESIA [None]
  - ALTERED STATE OF CONSCIOUSNESS [None]
  - CENTRAL PONTINE MYELINOLYSIS [None]
  - COMA [None]
  - DELIRIUM [None]
  - HALLUCINATIONS, MIXED [None]
  - MUSCLE RIGIDITY [None]
  - MUSCULAR WEAKNESS [None]
  - SOMNOLENCE [None]
  - TREMOR [None]
